FAERS Safety Report 15703888 (Version 1)
Quarter: 2018Q4

REPORT INFORMATION
  Report Type: Spontaneous
  Country: US (occurrence: US)
  Receive Date: 20181127
  Receipt Date: 20181127
  Transmission Date: 20190205
  Serious: No
  Sender: FDA-Public Use
  Company Number: None

PATIENT
  Age: 48 Year
  Sex: Female

DRUGS (1)
  1. BENLYSTA [Suspect]
     Active Substance: BELIMUMAB
     Dosage: ?          OTHER FREQUENCY:UNKNOWN;?
     Route: 058
     Dates: start: 201807

REACTIONS (4)
  - Abdominal pain [None]
  - Gastrooesophageal reflux disease [None]
  - Gastritis [None]
  - Flatulence [None]

NARRATIVE: CASE EVENT DATE: 20181126
